FAERS Safety Report 16111429 (Version 1)
Quarter: 2019Q1

REPORT INFORMATION
  Report Type: Spontaneous
  Country: FR (occurrence: FR)
  Receive Date: 20190325
  Receipt Date: 20190325
  Transmission Date: 20190418
  Serious: Yes (Other)
  Sender: FDA-Public Use
  Company Number: FR-SA-2019SA080456

PATIENT
  Age: 67 Year
  Sex: Female
  Weight: 95 kg

DRUGS (5)
  1. RIFAMPICIN [Suspect]
     Active Substance: RIFAMPIN
     Indication: OSTEITIS
     Dosage: 900 MG, QD
     Route: 048
     Dates: start: 20190226
  2. REPAGLINIDE. [Interacting]
     Active Substance: REPAGLINIDE
     Indication: TYPE 2 DIABETES MELLITUS
     Dosage: UNK
     Route: 048
  3. LEVOFLOXACIN. [Interacting]
     Active Substance: LEVOFLOXACIN
     Indication: OSTEITIS
     Dosage: 500 MG, QD
     Route: 048
     Dates: start: 20190227
  4. IMIPENEM MONOHYDRATE/CILASTATIN SODIUM [Interacting]
     Active Substance: CILASTATIN SODIUM\IMIPENEM
     Indication: OSTEITIS
     Dosage: 1500 MG, QD
     Route: 041
     Dates: start: 20190226
  5. METFORMINE WINTHROP [Interacting]
     Active Substance: METFORMIN HYDROCHLORIDE
     Indication: TYPE 2 DIABETES MELLITUS
     Dosage: 1500 MG, QD
     Route: 048

REACTIONS (1)
  - Hypoglycaemia [Recovering/Resolving]

NARRATIVE: CASE EVENT DATE: 20190228
